FAERS Safety Report 15046018 (Version 1)
Quarter: 2018Q2

REPORT INFORMATION
  Report Type: Spontaneous
  Country: US (occurrence: US)
  Receive Date: 20180621
  Receipt Date: 20180621
  Transmission Date: 20180711
  Serious: Yes (Other)
  Sender: FDA-Public Use
  Company Number: US-009507513-1806USA007659

PATIENT
  Sex: Female

DRUGS (7)
  1. VITAMINS (UNSPECIFIED) [Concomitant]
     Active Substance: VITAMINS
  2. LISINOPRIL. [Concomitant]
     Active Substance: LISINOPRIL
  3. PROBIOTICS (UNSPECIFIED) [Concomitant]
     Active Substance: PROBIOTICS NOS
  4. ATORVASTATIN [Concomitant]
     Active Substance: ATORVASTATIN
  5. KEYTRUDA [Suspect]
     Active Substance: PEMBROLIZUMAB
     Indication: MALIGNANT MELANOMA
     Dosage: UNK
     Route: 042
     Dates: start: 201802
  6. CALCIUM (UNSPECIFIED) [Concomitant]
     Active Substance: CALCIUM
  7. CHOLECALCIFEROL [Concomitant]
     Active Substance: CHOLECALCIFEROL

REACTIONS (2)
  - Brain operation [Unknown]
  - Radiotherapy [Unknown]

NARRATIVE: CASE EVENT DATE: 2018
